FAERS Safety Report 9909776 (Version 1)
Quarter: 2014Q1

REPORT INFORMATION
  Report Type: Spontaneous
  Country: US (occurrence: US)
  Receive Date: 20140219
  Receipt Date: 20140219
  Transmission Date: 20141002
  Serious: No
  Sender: FDA-Public Use
  Company Number: US-PFIZER INC-2014043571

PATIENT
  Age: 63 Year
  Sex: Male
  Weight: 158.73 kg

DRUGS (3)
  1. TOVIAZ [Suspect]
     Dosage: UNK
     Dates: start: 2012, end: 2014
  2. MELOXICAM [Concomitant]
     Dosage: 15 MG, 1X/DAY
  3. BENAZEPRIL [Concomitant]
     Indication: BLOOD PRESSURE ABNORMAL
     Dosage: 40 MG, 1X/DAY

REACTIONS (1)
  - Joint lock [Recovered/Resolved]
